FAERS Safety Report 12791807 (Version 2)
Quarter: 2016Q4

REPORT INFORMATION
  Report Type: Spontaneous
  Country: GB (occurrence: GB)
  Receive Date: 20160929
  Receipt Date: 20161007
  Transmission Date: 20170207
  Serious: Yes (Other)
  Sender: FDA-Public Use
  Company Number: GB-VIIV HEALTHCARE LIMITED-GB2016GSK141120

PATIENT
  Sex: Male

DRUGS (1)
  1. TIVICAY [Suspect]
     Active Substance: DOLUTEGRAVIR SODIUM
     Indication: HIV INFECTION
     Dosage: 1 UNK, QD
     Dates: start: 201603

REACTIONS (2)
  - Supraventricular tachycardia [Unknown]
  - Long QT syndrome [Unknown]

NARRATIVE: CASE EVENT DATE: 2016
